FAERS Safety Report 17290910 (Version 1)
Quarter: 2020Q1

REPORT INFORMATION
  Report Type: Spontaneous
  Country: KR (occurrence: KR)
  Receive Date: 20200121
  Receipt Date: 20200121
  Transmission Date: 20200409
  Serious: Yes (Other)
  Sender: FDA-Public Use
  Company Number: KR-BAYER-2019-218862

PATIENT
  Age: 21 Year
  Sex: Female

DRUGS (2)
  1. YAZ [Suspect]
     Active Substance: DROSPIRENONE\ETHINYL ESTRADIOL
     Indication: POLYCYSTIC OVARIES
     Dosage: UNK, QD
     Route: 048
     Dates: start: 201909
  2. YAZ [Suspect]
     Active Substance: DROSPIRENONE\ETHINYL ESTRADIOL
     Indication: MENSTRUATION IRREGULAR
     Dosage: UNK
     Route: 048
     Dates: start: 2016, end: 2017

REACTIONS (5)
  - Product use in unapproved indication [None]
  - Off label use [None]
  - Product use in unapproved indication [None]
  - Deep vein thrombosis [None]
  - Pain in extremity [None]

NARRATIVE: CASE EVENT DATE: 2016
